FAERS Safety Report 9841520 (Version 1)
Quarter: 2014Q1

REPORT INFORMATION
  Report Type: Spontaneous
  Country: FR (occurrence: FR)
  Receive Date: 20140124
  Receipt Date: 20140124
  Transmission Date: 20141002
  Serious: Yes (Hospitalization)
  Sender: FDA-Public Use
  Company Number: FR-PFIZER INC-2014018072

PATIENT
  Age: 85 Year
  Sex: Female

DRUGS (5)
  1. TAZOCILLINE [Suspect]
     Indication: ENTEROCOCCAL INFECTION
     Dosage: 4 G, 3X/DAY
     Route: 042
     Dates: start: 20090227, end: 20090328
  2. VANCOMYCINE [Suspect]
     Indication: ENTEROCOCCAL INFECTION
     Dosage: 500 MG, 4X/DAY
     Route: 042
     Dates: start: 20090312, end: 20090328
  3. POLARAMINE [Concomitant]
  4. MOPRAL [Concomitant]
     Dosage: 40 MG, UNK
  5. SPASFON [Concomitant]

REACTIONS (2)
  - Agranulocytosis [Recovered/Resolved]
  - Rash maculo-papular [Recovered/Resolved]
